FAERS Safety Report 13591821 (Version 4)
Quarter: 2017Q3

REPORT INFORMATION
  Report Type: Spontaneous
  Country: US (occurrence: US)
  Receive Date: 20170529
  Receipt Date: 20170717
  Transmission Date: 20171127
  Serious: No
  Sender: FDA-Public Use
  Company Number: US-SHIRE-US201711760

PATIENT
  Sex: Female

DRUGS (2)
  1. LIALDA [Suspect]
     Active Substance: MESALAMINE
     Dosage: UNK, 2X/DAY:BID
     Route: 048
  2. LIALDA [Suspect]
     Active Substance: MESALAMINE
     Indication: PRODUCT USED FOR UNKNOWN INDICATION
     Dosage: UNK UNK, 3X/DAY:TID
     Route: 048
     Dates: start: 2017

REACTIONS (7)
  - Migraine [Unknown]
  - Night sweats [Unknown]
  - Condition aggravated [Recovered/Resolved]
  - Dizziness [Unknown]
  - Chills [Unknown]
  - Inappropriate schedule of drug administration [Not Recovered/Not Resolved]
  - Malaise [Recovered/Resolved]

NARRATIVE: CASE EVENT DATE: 2017
